FAERS Safety Report 6166156-8 (Version None)
Quarter: 2009Q2

REPORT INFORMATION
  Report Type: 
  Country: None (occurrence: None)
  Receive Date: 20090422
  Receipt Date: 20090422
  Transmission Date: 20091009
  Serious: Yes (Hospitalization)
  Sender: FDA-Public Use
  Company Number: None

PATIENT
  Sex: Female

DRUGS (2)
  1. OXALIPLATIN [Suspect]
     Indication: COLON CANCER RECURRENT
     Dosage: 157 MG EVERY 2 WKS IV
     Route: 042
     Dates: start: 20090407
  2. LEUCOVORIN CALCIUM [Concomitant]

REACTIONS (5)
  - CHEST DISCOMFORT [None]
  - CHEST PAIN [None]
  - DEFAECATION URGENCY [None]
  - MALAISE [None]
  - SKIN WARM [None]
